FAERS Safety Report 5860865-3 (Version None)
Quarter: 2008Q3

REPORT INFORMATION
  Report Type: 
  Country: None (occurrence: None)
  Receive Date: 20080826
  Receipt Date: 20080813
  Transmission Date: 20090109
  Serious: Yes (Other)
  Sender: FDA-Public Use
  Company Number: 08-001341

PATIENT
  Age: 37 Year
  Sex: Female
  Weight: 66.2 kg

DRUGS (1)
  1. LOESTRIN 24 FE(NORETHINDRONE ACETATE, ETHIINYL ESTRADIOL, FERROUS FUMA [Suspect]
     Indication: CONTRACEPTION
     Dosage: 20/1000UG, QD, ORAL
     Route: 048
     Dates: start: 20070101, end: 20080701

REACTIONS (4)
  - BIPOLAR DISORDER [None]
  - DRUG INEFFECTIVE [None]
  - INAPPROPRIATE SCHEDULE OF DRUG ADMINISTRATION [None]
  - PREGNANCY [None]
